FAERS Safety Report 5969316-1 (Version None)
Quarter: 2008Q4

REPORT INFORMATION
  Report Type: 
  Country: None (occurrence: None)
  Receive Date: 20081126
  Receipt Date: 20081114
  Transmission Date: 20090506
  Serious: Yes (Death, Hospitalization)
  Sender: FDA-Public Use
  Company Number: IT-PFIZER INC-2007040211

PATIENT
  Sex: Male
  Weight: 88 kg

DRUGS (5)
  1. SU-011,248 [Suspect]
     Indication: METASTATIC RENAL CELL CARCINOMA
     Route: 048
     Dates: start: 20051014, end: 20070321
  2. OMEPRAZOLE [Concomitant]
     Dates: start: 20051014, end: 20070326
  3. OXYCODONE HYDROCHLORIDE W/PARACETAMOL [Concomitant]
     Dates: start: 20060622, end: 20070326
  4. ORAMORPH SR [Concomitant]
     Dates: start: 20060622, end: 20070326
  5. NEURONTIN [Concomitant]
     Dates: start: 20060622, end: 20070326

REACTIONS (2)
  - DYSPNOEA [None]
  - MYOCARDIAL INFARCTION [None]
